FAERS Safety Report 24975932 (Version 1)
Quarter: 2025Q1

REPORT INFORMATION
  Report Type: Spontaneous
  Country: US (occurrence: US)
  Receive Date: 20250217
  Receipt Date: 20250217
  Transmission Date: 20250409
  Serious: No
  Sender: AUROBINDO
  Company Number: US-AUROBINDO-AUR-APL-2024-056966

PATIENT

DRUGS (1)
  1. ESTRADIOL [Suspect]
     Active Substance: ESTRADIOL
     Indication: Product used for unknown indication
     Route: 065

REACTIONS (6)
  - Night sweats [Unknown]
  - Fatigue [Unknown]
  - Vertigo [Unknown]
  - Anxiety [Unknown]
  - Sleep disorder [Unknown]
  - Product substitution issue [Unknown]
